FAERS Safety Report 7488874-1 (Version None)
Quarter: 2011Q2

REPORT INFORMATION
  Report Type: 
  Country: None (occurrence: None)
  Receive Date: 20110518
  Receipt Date: 20110517
  Transmission Date: 20111010
  Serious: Yes (Hospitalization)
  Sender: FDA-Public Use
  Company Number: PHHY2011GB38790

PATIENT
  Age: 49 Year
  Sex: Female

DRUGS (2)
  1. OMEPRAZOLE [Suspect]
     Dosage: 40 MG/DAY
     Route: 048
  2. SODIUM CHLORIDE [Suspect]
     Indication: NUTRITIONAL SUPPORT
     Dosage: UNK UKN, UNK
     Route: 042

REACTIONS (9)
  - ACID BASE BALANCE ABNORMAL [None]
  - BLOOD PH DECREASED [None]
  - PCO2 DECREASED [None]
  - HYPERVENTILATION [None]
  - ALKALOSIS HYPOCHLORAEMIC [None]
  - PSYCHOTIC DISORDER [None]
  - BLOOD BICARBONATE DECREASED [None]
  - HYPERALDOSTERONISM [None]
  - HYPERCHLORAEMIA [None]
